FAERS Safety Report 7527443-1 (Version None)
Quarter: 2011Q2

REPORT INFORMATION
  Report Type: 
  Country: None (occurrence: None)
  Receive Date: 20110603
  Receipt Date: 20110523
  Transmission Date: 20111010
  Serious: Yes (Other)
  Sender: FDA-Public Use
  Company Number: JPI-P-015194

PATIENT
  Age: 30 Year
  Sex: Female
  Weight: 56.6996 kg

DRUGS (10)
  1. CLONAZEPAM [Concomitant]
  2. TEMAZEPAM [Concomitant]
  3. XYREM [Suspect]
     Indication: FIBROMYALGIA
     Dosage: ORAL ; 9 GM (4.5 GM,2 IN 1 D),ORAL
     Route: 048
     Dates: start: 20100809
  4. DOXEPIN [Concomitant]
  5. LORATADINE [Concomitant]
  6. PREGABALIN [Concomitant]
  7. BUDESONIDE [Concomitant]
  8. DULOXETINE HYDROCHLORIDE [Concomitant]
  9. FENTANYL-100 [Concomitant]
  10. BIRTH CONTROL PILLS [Concomitant]

REACTIONS (3)
  - HEPATIC CYST [None]
  - CHOLELITHIASIS [None]
  - ABDOMINAL PAIN [None]
